FAERS Safety Report 16968662 (Version 2)
Quarter: 2020Q1

REPORT INFORMATION
  Report Type: Report from Study
  Country: US (occurrence: US)
  Receive Date: 20191029
  Receipt Date: 20200319
  Transmission Date: 20200409
  Serious: Yes (Other)
  Sender: FDA-Public Use
  Company Number: US-TEVA-2019-US-1127644

PATIENT
  Sex: Female

DRUGS (4)
  1. DULOXETINE. [Concomitant]
     Active Substance: DULOXETINE
  2. TRAZODONE [Concomitant]
     Active Substance: TRAZODONE HYDROCHLORIDE
  3. CLARAVIS [Suspect]
     Active Substance: ISOTRETINOIN
  4. CLARAVIS [Suspect]
     Active Substance: ISOTRETINOIN

REACTIONS (2)
  - Depression [Recovered/Resolved]
  - Suicidal ideation [Recovered/Resolved]
